FAERS Safety Report 7780489-0 (Version None)
Quarter: 2011Q3

REPORT INFORMATION
  Report Type: 
  Country: None (occurrence: None)
  Receive Date: 20110927
  Receipt Date: 20110805
  Transmission Date: 20111222
  Serious: No
  Sender: FDA-Public Use
  Company Number: US-GLAXOSMITHKLINE-A0939928A

PATIENT
  Sex: Female

DRUGS (2)
  1. LAMICTAL [Suspect]
     Indication: EPILEPSY
     Dosage: 900MG PER DAY
     Route: 048
  2. KEPPRA XR [Concomitant]

REACTIONS (1)
  - MATERNAL EXPOSURE DURING PREGNANCY [None]
